FAERS Safety Report 13983629 (Version 2)
Quarter: 2017Q4

REPORT INFORMATION
  Report Type: Spontaneous
  Country: FR (occurrence: FR)
  Receive Date: 20170918
  Receipt Date: 20171006
  Transmission Date: 20180321
  Serious: Yes (Other)
  Sender: FDA-Public Use
  Company Number: FR-MERCK KGAA-2026658

PATIENT
  Age: 49 Year
  Sex: Female

DRUGS (3)
  1. OESTRODOSE [Concomitant]
     Active Substance: ESTRADIOL
     Dates: start: 2012
  2. PROGESTAN [Concomitant]
     Active Substance: PROGESTERONE
  3. NOVOTHYROX [Suspect]
     Active Substance: LEVOTHYROXINE SODIUM
     Indication: HYPOTHYROIDISM
     Route: 048
     Dates: start: 20170724

REACTIONS (7)
  - Vertigo [Recovering/Resolving]
  - Headache [Recovering/Resolving]
  - Depression [Not Recovered/Not Resolved]
  - Hot flush [Not Recovered/Not Resolved]
  - Gastrointestinal disorder [Not Recovered/Not Resolved]
  - Fatigue [Not Recovered/Not Resolved]
  - Nausea [Recovering/Resolving]

NARRATIVE: CASE EVENT DATE: 201708
